FAERS Safety Report 8394740-X (Version None)
Quarter: 2012Q2

REPORT INFORMATION
  Report Type: 
  Country: None (occurrence: None)
  Receive Date: 20120525
  Receipt Date: 20120525
  Transmission Date: 20120825
  Serious: Yes (Hospitalization, Other)
  Sender: FDA-Public Use
  Company Number: None

PATIENT
  Age: 8 Year
  Sex: Male
  Weight: 36 kg

DRUGS (1)
  1. FOSPHENYTOIN [Suspect]
     Indication: GRAND MAL CONVULSION
     Dosage: 725 MG IN 100 ML NS IV ONE TIME IV BOLUS ONE PARTIAL DOSE
     Route: 040
     Dates: start: 20120523, end: 20120523

REACTIONS (3)
  - PRODUCT QUALITY ISSUE [None]
  - PRURITUS [None]
  - PRODUCT CONTAMINATION PHYSICAL [None]
